FAERS Safety Report 14076273 (Version 7)
Quarter: 2018Q1

REPORT INFORMATION
  Report Type: Spontaneous
  Country: ES (occurrence: ES)
  Receive Date: 20171011
  Receipt Date: 20180104
  Transmission Date: 20180508
  Serious: Yes (Hospitalization, Other)
  Sender: FDA-Public Use
  Company Number: ES-JNJFOC-20171005543

PATIENT
  Age: 87 Year
  Sex: Male
  Weight: 87 kg

DRUGS (28)
  1. ALLOPURINOL. [Suspect]
     Active Substance: ALLOPURINOL
     Indication: HYPERURICAEMIA
     Dosage: ON ALLOPURINOL FOR 6 YEARS
     Route: 065
     Dates: start: 2011
  2. ZYLORIC [Concomitant]
     Active Substance: ALLOPURINOL
     Route: 065
  3. SALMETEROL [Concomitant]
     Active Substance: SALMETEROL
     Dosage: 1 INHALATION
     Route: 055
  4. ACICLOVIR [Suspect]
     Active Substance: ACYCLOVIR
     Indication: PRODUCT USED FOR UNKNOWN INDICATION
     Route: 042
     Dates: start: 20170810
  5. ENALAPRIL [Concomitant]
     Active Substance: ENALAPRIL
     Route: 065
  6. SEGURIL [Concomitant]
     Active Substance: FUROSEMIDE
     Dosage: 1.5 (60 MG/ DAY)
     Route: 065
     Dates: end: 20170802
  7. DACORTIN [Concomitant]
     Active Substance: PREDNISONE
     Route: 065
     Dates: end: 20170801
  8. BETAMETHASONE W/CALCIPOTRIOL [Concomitant]
     Route: 065
     Dates: start: 201704
  9. LORATADINE. [Concomitant]
     Active Substance: LORATADINE
     Route: 048
     Dates: start: 20170726
  10. STELARA [Suspect]
     Active Substance: USTEKINUMAB
     Indication: PSORIASIS
     Route: 058
     Dates: start: 20170803, end: 20170803
  11. BRETARIS GENUAIR [Concomitant]
     Active Substance: ACLIDINIUM BROMIDE
     Dosage: 1 INHALATION
     Route: 055
  12. PARACETAMOL [Concomitant]
     Active Substance: ACETAMINOPHEN
     Route: 065
  13. EUCERIN [Concomitant]
     Active Substance: ENSULIZOLE\EUCERIN\OCTINOXATE\OCTISALATE\TITANIUM DIOXIDE\ZINC OXIDE
     Route: 065
  14. FLUCONAZOLE. [Suspect]
     Active Substance: FLUCONAZOLE
     Indication: PRODUCT USED FOR UNKNOWN INDICATION
     Dosage: ON ALLOPURINOL FOR 6 YEARS
     Route: 042
     Dates: start: 20170810
  15. NEOTIGASON [Suspect]
     Active Substance: ACITRETIN
     Indication: ERYTHRODERMIC PSORIASIS
     Route: 065
     Dates: start: 20170728
  16. MONOLITUM [Concomitant]
     Route: 065
  17. OMNIC OCAS [Concomitant]
     Active Substance: TAMSULOSIN HYDROCHLORIDE
     Route: 065
  18. BILAXTEN [Concomitant]
     Active Substance: BILASTINE
     Route: 065
     Dates: end: 20170726
  19. AUXINA A+E [Concomitant]
     Route: 048
     Dates: start: 201704, end: 20170726
  20. STELARA [Suspect]
     Active Substance: USTEKINUMAB
     Indication: ERYTHRODERMIC PSORIASIS
     Route: 058
     Dates: start: 20170803, end: 20170803
  21. NOLOTIL (METAMIZOLE MAGNESIUM) [Suspect]
     Active Substance: METAMIZOLE MAGNESIUM
     Indication: PRODUCT USED FOR UNKNOWN INDICATION
     Route: 042
     Dates: start: 201708
  22. ACITRETIN. [Concomitant]
     Active Substance: ACITRETIN
     Route: 065
     Dates: start: 20170728
  23. DIPROGENTA [Concomitant]
     Active Substance: BETAMETHASONE DIPROPIONATE\GENTAMICIN SULFATE
     Dosage: FOR 10 DAYS
     Route: 061
  24. ALDACTONE [Concomitant]
     Active Substance: SPIRONOLACTONE
     Route: 065
     Dates: end: 20170802
  25. SIMVASTATIN. [Concomitant]
     Active Substance: SIMVASTATIN
     Route: 065
  26. CEFTRIAXONE. [Suspect]
     Active Substance: CEFTRIAXONE
     Indication: PRODUCT USED FOR UNKNOWN INDICATION
     Route: 030
     Dates: start: 201708, end: 20170812
  27. JUNIPER OIL [Concomitant]
     Dosage: BATHROOMS WITH JUNIPER OIL ONCE A DAY FOR 20 MINUTES.
     Route: 065
  28. AZITHROMYCIN ANHYDROUS. [Concomitant]
     Active Substance: AZITHROMYCIN ANHYDROUS
     Route: 065
     Dates: end: 20170812

REACTIONS (2)
  - Oral candidiasis [Recovering/Resolving]
  - Toxic epidermal necrolysis [Recovered/Resolved]

NARRATIVE: CASE EVENT DATE: 2017
